FAERS Safety Report 5302110-3 (Version None)
Quarter: 2007Q2

REPORT INFORMATION
  Report Type: 
  Country: None (occurrence: None)
  Receive Date: 20070419
  Receipt Date: 20070412
  Transmission Date: 20071010
  Serious: Yes (Hospitalization)
  Sender: FDA-Public Use
  Company Number: FR-GLAXOSMITHKLINE-B0466311A

PATIENT
  Age: 57 Year
  Sex: Female

DRUGS (1)
  1. MALARONE [Suspect]
     Route: 048
     Dates: start: 20070307, end: 20070322

REACTIONS (6)
  - LARYNGEAL OEDEMA [None]
  - PALATAL OEDEMA [None]
  - PHARYNGOLARYNGEAL PAIN [None]
  - PRURITUS [None]
  - RETCHING [None]
  - TONGUE OEDEMA [None]
